FAERS Safety Report 9284170 (Version 1)
Quarter: 2013Q2

REPORT INFORMATION
  Report Type: Spontaneous
  Country: DE (occurrence: None)
  Receive Date: 20130502
  Receipt Date: 20130502
  Transmission Date: 20140414
  Serious: Yes (Other)
  Sender: FDA-Public Use
  Company Number: 1304-557

PATIENT
  Age: 85 Year
  Sex: Male

DRUGS (4)
  1. EYLEA (AFLIBERCEPT) (AFLIBERCEPT) [Suspect]
     Indication: AGE-RELATED MACULAR DEGENERATION
     Dates: start: 20121221
  2. FML (FLUOROMETHOLONE) [Concomitant]
  3. COMBIGAN (COMBIGAN) [Concomitant]
  4. DIATEX (DIAZEPAM) [Concomitant]

REACTIONS (3)
  - Blood glucose increased [None]
  - Vision blurred [None]
  - No therapeutic response [None]
